FAERS Safety Report 23166072 (Version 1)
Quarter: 2023Q4

REPORT INFORMATION
  Report Type: Spontaneous
  Country: US (occurrence: None)
  Receive Date: 20231109
  Receipt Date: 20231109
  Transmission Date: 20240109
  Serious: Yes (Other)
  Sender: FDA-Public Use
  Company Number: None

PATIENT
  Age: 72 Year
  Sex: Female

DRUGS (1)
  1. BOTOX [Suspect]
     Active Substance: ONABOTULINUMTOXINA
     Dosage: OTHER FREQUENCY : EVERY 3;?

REACTIONS (8)
  - Fatigue [None]
  - Insomnia [None]
  - Wrong technique in device usage process [None]
  - Middle insomnia [None]
  - Hallucination [None]
  - Vision blurred [None]
  - Photopsia [None]
  - Balance disorder [None]
